FAERS Safety Report 6325073-0 (Version None)
Quarter: 2009Q3

REPORT INFORMATION
  Report Type: 
  Country: None (occurrence: None)
  Receive Date: 20090824
  Receipt Date: 20090709
  Transmission Date: 20100115
  Serious: No
  Sender: FDA-Public Use
  Company Number: US-ABBOTT-09P-163-0584676-00

PATIENT
  Weight: 72.186 kg

DRUGS (13)
  1. NIASPAN [Suspect]
     Indication: BLOOD TRIGLYCERIDES INCREASED
     Dates: start: 20090601
  2. NIASPAN [Suspect]
     Indication: HIGH DENSITY LIPOPROTEIN DECREASED
  3. NIASPAN [Suspect]
     Indication: LOW DENSITY LIPOPROTEIN INCREASED
  4. EFFEXOR [Concomitant]
     Indication: DRUG USE FOR UNKNOWN INDICATION
  5. SINGULAIR [Concomitant]
     Indication: DRUG USE FOR UNKNOWN INDICATION
  6. COZAAR [Concomitant]
     Indication: DRUG USE FOR UNKNOWN INDICATION
  7. ASPIRIN [Concomitant]
     Indication: DRUG USE FOR UNKNOWN INDICATION
  8. NEXIUM [Concomitant]
     Indication: DRUG USE FOR UNKNOWN INDICATION
  9. NASACORT [Concomitant]
     Indication: DRUG USE FOR UNKNOWN INDICATION
  10. SYMBICORT [Concomitant]
     Indication: DRUG USE FOR UNKNOWN INDICATION
  11. VITAMIN D [Concomitant]
     Indication: DRUG USE FOR UNKNOWN INDICATION
  12. MULTI-VITAMIN [Concomitant]
     Indication: DRUG USE FOR UNKNOWN INDICATION
  13. LOVAZA [Concomitant]
     Indication: DRUG USE FOR UNKNOWN INDICATION

REACTIONS (2)
  - DYSPEPSIA [None]
  - POLLAKIURIA [None]
